FAERS Safety Report 8966073 (Version 1)
Quarter: 2012Q4

REPORT INFORMATION
  Report Type: 
  Country: US (occurrence: US)
  Receive Date: 20121217
  Receipt Date: 20121217
  Transmission Date: 20130627
  Serious: Yes (Hospitalization)
  Sender: FDA-Public Use
  Company Number: US-AMGEN-USASP2012079445

PATIENT
  Age: 47 Year
  Sex: Female

DRUGS (1)
  1. ENBREL [Suspect]
     Indication: POLYMYOSITIS
     Dosage: 25 mg, 3 times/wk
     Dates: start: 20001031

REACTIONS (8)
  - Coronary artery perforation [Recovered/Resolved]
  - Procedural complication [Recovered/Resolved]
  - Cerebrovascular accident [Recovered/Resolved]
  - Hypersensitivity [Recovered/Resolved]
  - Cardiac failure [Recovered/Resolved]
  - Tonsillitis [Not Recovered/Not Resolved]
  - Headache [Not Recovered/Not Resolved]
  - Bronchitis [Not Recovered/Not Resolved]
